FAERS Safety Report 10977975 (Version 3)
Quarter: 2015Q2

REPORT INFORMATION
  Report Type: Spontaneous
  Country: CA (occurrence: CA)
  Receive Date: 20150402
  Receipt Date: 20150429
  Transmission Date: 20150821
  Serious: Yes (Other)
  Sender: FDA-Public Use
  Company Number: CA-JNJFOC-20150320846

PATIENT
  Age: 61 Year
  Sex: Male

DRUGS (2)
  1. SOFOSBUVIR [Suspect]
     Active Substance: SOFOSBUVIR
     Indication: HEPATITIS C
     Route: 048
     Dates: start: 20140910, end: 20141203
  2. GALEXOS [Suspect]
     Active Substance: SIMEPREVIR
     Indication: HEPATITIS C
     Route: 048
     Dates: start: 20140910, end: 20141203

REACTIONS (2)
  - Drug ineffective [Unknown]
  - Hepatitis C [Unknown]

NARRATIVE: CASE EVENT DATE: 20150223
